FAERS Safety Report 12599441 (Version 1)
Quarter: 2016Q3

REPORT INFORMATION
  Report Type: Spontaneous
  Country: US (occurrence: US)
  Receive Date: 20160727
  Receipt Date: 20160727
  Transmission Date: 20161109
  Serious: Yes (Death, Life-Threatening, Hospitalization)
  Sender: FDA-Public Use
  Company Number: US-PERRIGO-16US018144

PATIENT
  Age: 62 Year
  Sex: Male

DRUGS (1)
  1. ACETAMINOPHEN. [Suspect]
     Active Substance: ACETAMINOPHEN
     Indication: BACK PAIN
     Route: 048

REACTIONS (6)
  - Intentional product misuse [Unknown]
  - Organ failure [Not Recovered/Not Resolved]
  - Overdose [Not Recovered/Not Resolved]
  - Cardio-respiratory arrest [Fatal]
  - Cardiac arrest [Recovered/Resolved]
  - Hepatic failure [Not Recovered/Not Resolved]
